FAERS Safety Report 12490240 (Version 1)
Quarter: 2016Q2

REPORT INFORMATION
  Report Type: Report from Study
  Country: CH (occurrence: CH)
  Receive Date: 20160622
  Receipt Date: 20160622
  Transmission Date: 20160815
  Serious: Yes (Hospitalization)
  Sender: FDA-Public Use
  Company Number: CH-ABBVIE-16P-151-1656070-00

PATIENT
  Sex: Male

DRUGS (1)
  1. DUODOPA [Suspect]
     Active Substance: CARBIDOPA\LEVODOPA
     Indication: PARKINSON^S DISEASE
     Dosage: MD 4.0 ML;CD DAY 3.6 ML/H; CD NIGHT: 3.0 ML/H; ED 2.5 ML
     Route: 050

REACTIONS (2)
  - Device dislocation [Unknown]
  - Pneumonia [Not Recovered/Not Resolved]
